FAERS Safety Report 7098456-1 (Version None)
Quarter: 2010Q4

REPORT INFORMATION
  Report Type: 
  Country: None (occurrence: None)
  Receive Date: 20101112
  Receipt Date: 20101102
  Transmission Date: 20110411
  Serious: Yes (Other)
  Sender: FDA-Public Use
  Company Number: ES-SANOFI-AVENTIS-2010SA066973

PATIENT
  Age: 27 Year
  Sex: Male

DRUGS (1)
  1. ZOLPIDEM [Suspect]
     Route: 048

REACTIONS (8)
  - ABNORMAL SLEEP-RELATED EVENT [None]
  - AMNESIA [None]
  - CONDITION AGGRAVATED [None]
  - DECREASED APPETITE [None]
  - SKIN LACERATION [None]
  - SLEEP TALKING [None]
  - SLEEP-RELATED EATING DISORDER [None]
  - WEIGHT INCREASED [None]
